FAERS Safety Report 19765913 (Version 2)
Quarter: 2021Q3

REPORT INFORMATION
  Report Type: Other
  Country: ES (occurrence: ES)
  Receive Date: 20210830
  Receipt Date: 20210901
  Transmission Date: 20211014
  Serious: Yes (Other)
  Sender: FDA-Public Use
  Company Number: ES-ROCHE-2893611

PATIENT
  Sex: Female

DRUGS (4)
  1. TRASTUZUMAB. [Suspect]
     Active Substance: TRASTUZUMAB
     Indication: HER2 POSITIVE BREAST CANCER
     Route: 058
  2. TRASTUZUMAB. [Suspect]
     Active Substance: TRASTUZUMAB
     Indication: HER2 POSITIVE BREAST CANCER
     Dosage: MAINTENANCE DOSE OF 6 MG/KG
     Route: 041
  3. TRASTUZUMAB. [Suspect]
     Active Substance: TRASTUZUMAB
     Dosage: LOADING DOSE OF 8 MG/KG
     Route: 042
  4. PALBOCICLIB [Suspect]
     Active Substance: PALBOCICLIB
     Indication: HER2 POSITIVE BREAST CANCER
     Dosage: 200 MG, DAILY FOR 2 WEEKS AND 1 WEEK OFF
     Route: 048

REACTIONS (1)
  - Thrombocytopenia [Unknown]
